FAERS Safety Report 9112506 (Version 1)
Quarter: 2013Q1

REPORT INFORMATION
  Report Type: Spontaneous
  Country: BR (occurrence: BR)
  Receive Date: 20130211
  Receipt Date: 20130211
  Transmission Date: 20140127
  Serious: Yes (Hospitalization, Other)
  Sender: FDA-Public Use
  Company Number: BR-ASTRAZENECA-2013SE08306

PATIENT
  Age: 82 Year
  Sex: Female
  Weight: 67 kg

DRUGS (9)
  1. NEXIUM [Suspect]
     Indication: GASTRITIS PROPHYLAXIS
     Route: 048
     Dates: start: 2008, end: 201209
  2. NEXIUM [Suspect]
     Indication: GASTRITIS PROPHYLAXIS
     Route: 048
     Dates: start: 201209
  3. BRILINTA [Suspect]
     Route: 048
     Dates: start: 201212
  4. SYNTHROID [Concomitant]
     Route: 048
  5. CARVEDILOL [Concomitant]
     Route: 048
  6. ROSUCOR [Concomitant]
     Route: 048
  7. ALDAZIDE [Concomitant]
     Route: 048
  8. PONDERA [Concomitant]
     Route: 048
     Dates: start: 2005
  9. DIGEPLUS [Concomitant]
     Route: 048
     Dates: start: 201209

REACTIONS (5)
  - Arrhythmia [Recovered/Resolved]
  - Fatigue [Recovered/Resolved]
  - Coronary artery occlusion [Recovered/Resolved]
  - Syncope [Recovered/Resolved]
  - Skin discolouration [Not Recovered/Not Resolved]
